FAERS Safety Report 7423969-X (Version None)
Quarter: 2011Q2

REPORT INFORMATION
  Report Type: 
  Country: None (occurrence: None)
  Receive Date: 20110419
  Receipt Date: 20110331
  Transmission Date: 20111010
  Serious: Yes (Other)
  Sender: FDA-Public Use
  Company Number: B0711215A

PATIENT
  Sex: Female
  Weight: 80.4 kg

DRUGS (2)
  1. XELODA [Concomitant]
     Indication: BREAST CANCER
     Dosage: 1800MG PER DAY
     Route: 048
     Dates: start: 20110202
  2. TYVERB [Suspect]
     Dosage: 1250MG PER DAY
     Route: 048
     Dates: start: 20110202

REACTIONS (3)
  - LACERATION [None]
  - CHAPPED LIPS [None]
  - SKIN FISSURES [None]
